FAERS Safety Report 17524828 (Version 2)
Quarter: 2021Q2

REPORT INFORMATION
  Report Type: Report from Study
  Country: IN (occurrence: IN)
  Receive Date: 20200310
  Receipt Date: 20210407
  Transmission Date: 20210716
  Serious: Yes (Death, Other)
  Sender: FDA-Public Use
  Company Number: NVSC2020IN061852

PATIENT
  Age: 85 Year
  Sex: Male

DRUGS (1)
  1. GLIVEC [Suspect]
     Active Substance: IMATINIB MESYLATE
     Indication: GASTROINTESTINAL STROMAL TUMOUR
     Dosage: 400 MG, QD
     Route: 065

REACTIONS (3)
  - Rectal cancer [Unknown]
  - Death [Fatal]
  - Second primary malignancy [Unknown]

NARRATIVE: CASE EVENT DATE: 20210403
